FAERS Safety Report 7533180-X (Version None)
Quarter: 2011Q2

REPORT INFORMATION
  Report Type: 
  Country: None (occurrence: None)
  Receive Date: 20110608
  Receipt Date: 20090930
  Transmission Date: 20111010
  Serious: Yes (Hospitalization, Other)
  Sender: FDA-Public Use
  Company Number: US-BAYER-200934600NA

PATIENT
  Age: 73 Year
  Sex: Female
  Weight: 63 kg

DRUGS (47)
  1. TRASYLOL [Suspect]
     Indication: MITRAL VALVE REPAIR
  2. ALBUTEROL SULFATE AUTOHALER [Concomitant]
     Dosage: 90 MCG PRN (NEBULIZER)
     Route: 055
  3. ACETYLSALICYLIC ACID SRT [Concomitant]
     Dosage: 81 MG, QD
     Dates: start: 20041204
  4. HEPARIN [Concomitant]
     Dosage: 10000 U, (PRIME)
     Dates: start: 20041220
  5. MORPHINE [Concomitant]
     Dosage: 5 MG, INTRAMUSCULAR INJECTION
     Route: 030
     Dates: start: 20041220
  6. SODIUM BICARBONATE [Concomitant]
     Dosage: UNK (PRIME)
     Dates: start: 20041220
  7. LEVOPHED [Concomitant]
     Dosage: UNK
     Route: 042
     Dates: start: 20041220
  8. INSULIN [Concomitant]
     Dosage: SLIDING SCALE
  9. ATENOLOL [Concomitant]
     Dosage: 25 MG, QD
     Dates: start: 20041204, end: 20041226
  10. PHENERGAN HCL [Concomitant]
     Dosage: 25 MG, UNK
     Route: 042
     Dates: start: 20041211
  11. MORPHINE [Concomitant]
     Indication: PREMEDICATION
     Dosage: 1-2 MG
     Route: 042
     Dates: start: 20041211
  12. LOVENOX [Concomitant]
     Dosage: 80 MG, UNK
     Route: 058
     Dates: start: 20041219, end: 20041228
  13. MUPIROCIN CALCIUM [Concomitant]
     Dosage: 0.2%
     Route: 045
     Dates: start: 20041220, end: 20041220
  14. PAPAVERINE [Concomitant]
     Dosage: 60 MG IN SODIUM CHLORIDE
     Dates: start: 20041220, end: 20041220
  15. CEFAZOLIN [Concomitant]
     Dosage: 1 G IN 500 CC SODIUM CHLORIDE
     Dates: start: 20041220
  16. OMNIPAQUE 140 [Concomitant]
     Dosage: UNK
     Route: 042
     Dates: start: 20041204, end: 20041204
  17. TRASYLOL [Suspect]
     Indication: CORONARY ARTERY BYPASS
     Dosage: 200 ML (PRIME)
     Route: 042
     Dates: start: 20041220, end: 20041220
  18. ATROVENT [Concomitant]
     Dosage: PRN (NEBULIZER)
     Route: 055
  19. NORCURON [Concomitant]
     Indication: INDUCTION OF ANAESTHESIA
     Dosage: UNK
     Route: 042
     Dates: start: 20041220, end: 20041220
  20. SOLU-CORTEF [Concomitant]
     Dosage: UNK
     Dates: start: 20041220
  21. NITROGLYCERIN [Concomitant]
     Dosage: IV INFUSION
     Route: 042
     Dates: start: 20041204
  22. POTASSIUM CHLORIDE [Concomitant]
     Dosage: 20 MEQ, Q12HRS
     Dates: start: 20041204
  23. LASIX [Concomitant]
     Dosage: 40 MG, Q12HRS
     Route: 042
     Dates: start: 20041204
  24. SUBLIMAZE PRESERVATIVE FREE [Concomitant]
     Indication: INDUCTION OF ANAESTHESIA
     Dosage: UNK
     Route: 042
     Dates: start: 20041220, end: 20041220
  25. MAGNESIUM SULFATE [Concomitant]
     Dosage: UNK
     Dates: start: 20041220
  26. SPIRIVA [Concomitant]
     Dosage: 1 PUFF DAILY
     Route: 055
     Dates: start: 20041204
  27. DILAUDID [Concomitant]
     Dosage: 1-2 MG
     Route: 042
     Dates: start: 20041211
  28. VERSED [Concomitant]
     Dosage: UNK
     Route: 042
     Dates: start: 20041220, end: 20041230
  29. COUMADIN [Concomitant]
  30. HEPARIN [Concomitant]
     Dosage: IV INFUSION
     Route: 042
     Dates: start: 20041204, end: 20041211
  31. DOXYCYCLINE [Concomitant]
  32. SCOPOLAMINE [Concomitant]
     Indication: PREMEDICATION
     Dosage: 0.3 MG, INTRAMUSCULAR INJECTION
     Route: 030
     Dates: start: 20041220
  33. MANNITOL [Concomitant]
     Dosage: UNK (PRIME)
     Dates: start: 20041220
  34. VANCOMYCIN [Concomitant]
     Dosage: 1 G, UNK
     Route: 042
     Dates: start: 20041220, end: 20050114
  35. SEVOFLURANE [Concomitant]
     Indication: INDUCTION OF ANAESTHESIA
     Dosage: UNK
     Route: 042
     Dates: start: 20041220, end: 20041220
  36. CLINDAMYCIN HCL [Concomitant]
     Dosage: 300 MG, UNK
  37. PREDNISONE [Concomitant]
     Dosage: 60 MG, QD
  38. LASIX [Concomitant]
     Dosage: 20 MG, UNK
     Route: 042
     Dates: start: 20041220
  39. BLOOD AND RELATED PRODUCTS [Concomitant]
     Indication: CATHETER SITE HAEMATOMA
     Dosage: 4 U, UNK
     Route: 042
     Dates: start: 20041213, end: 20041213
  40. VALIUM [Concomitant]
     Indication: PREMEDICATION
     Dosage: 5 MG, UNK
     Route: 048
     Dates: start: 20041220
  41. AVELOX [Concomitant]
     Indication: PNEUMONIA
     Dosage: 400 MG, QD
  42. FLONASE [Concomitant]
     Dosage: 2 PUFFS EACH NOSTRILS DAILY
     Route: 055
  43. CARDIZEM CD [Concomitant]
     Dosage: 240 MG, QD
     Dates: start: 20041204
  44. EPINEPHRINE [Concomitant]
     Dosage: UNK
     Route: 042
     Dates: start: 20041220
  45. PRIMACOR [Concomitant]
     Dosage: UNK
     Dates: start: 20041220
  46. PROTAMINE SULFATE [Concomitant]
     Dosage: UNK
     Dates: start: 20041220
  47. LIDOCAINE [Concomitant]
     Dosage: 30 ML, (LOCAL INFILTRATION)
     Dates: start: 20041220

REACTIONS (5)
  - INJURY [None]
  - PAIN [None]
  - UNEVALUABLE EVENT [None]
  - RENAL FAILURE ACUTE [None]
  - RENAL FAILURE [None]
